FAERS Safety Report 8127550-9 (Version None)
Quarter: 2011Q4

REPORT INFORMATION
  Report Type: 
  Country: None (occurrence: None)
  Receive Date: 20111227
  Receipt Date: 20111102
  Transmission Date: 20120403
  Serious: No
  Sender: FDA-Public Use
  Company Number: PHEH2011US08370

PATIENT
  Age: 54 Year
  Sex: Female

DRUGS (1)
  1. GILENYA [Suspect]
     Dosage: QD
     Dates: start: 20110501

REACTIONS (4)
  - DRUG INEFFECTIVE [None]
  - FALL [None]
  - OEDEMA PERIPHERAL [None]
  - ABASIA [None]
